FAERS Safety Report 10234575 (Version 1)
Quarter: 2014Q2

REPORT INFORMATION
  Report Type: Spontaneous
  Country: US (occurrence: US)
  Receive Date: 20140613
  Receipt Date: 20140613
  Transmission Date: 20141212
  Serious: No
  Sender: FDA-Public Use
  Company Number: US-009507513-1406USA006738

PATIENT
  Sex: Male

DRUGS (3)
  1. VYTORIN [Suspect]
     Indication: BLOOD CHOLESTEROL INCREASED
     Dosage: 10/20MG/ ONE PILL ONCE DAILY
     Route: 048
     Dates: start: 2012, end: 201404
  2. PREVACID [Concomitant]
     Dosage: 30MG ONCE DAILY
  3. ZOLOFT [Concomitant]
     Dosage: 150 MG ONCE DAILY

REACTIONS (2)
  - Pain in extremity [Recovered/Resolved]
  - Arthralgia [Recovered/Resolved]
